FAERS Safety Report 15266055 (Version 3)
Quarter: 2019Q2

REPORT INFORMATION
  Report Type: Spontaneous
  Country: BR (occurrence: BR)
  Receive Date: 20180810
  Receipt Date: 20190430
  Transmission Date: 20190711
  Serious: Yes (Other)
  Sender: FDA-Public Use
  Company Number: BR-BRISTOL-MYERS SQUIBB COMPANY-BMS-2018-072484

PATIENT
  Age: 57 Year
  Sex: Female

DRUGS (1)
  1. NIVOLUMAB [Suspect]
     Active Substance: NIVOLUMAB
     Indication: RENAL CELL CARCINOMA
     Dosage: 3 MILLILITRE PER KILOGRAM
     Route: 065
     Dates: start: 201701, end: 201709

REACTIONS (4)
  - Diabetes mellitus inadequate control [Recovering/Resolving]
  - Hepatitis [Recovering/Resolving]
  - Lipodystrophy acquired [Unknown]
  - Panniculitis lobular [Unknown]
